FAERS Safety Report 8839570 (Version 2)
Quarter: 2013Q1

REPORT INFORMATION
  Report Type: Spontaneous
  Country: VE (occurrence: VE)
  Receive Date: 20121015
  Receipt Date: 20130325
  Transmission Date: 20140127
  Serious: Yes (Other)
  Sender: FDA-Public Use
  Company Number: PHHY2012VE073323

PATIENT
  Age: 59 Year
  Sex: Female

DRUGS (4)
  1. FORADIL [Suspect]
     Indication: ASTHMA
     Dosage: 12 UG, BID
     Dates: start: 2009, end: 20120820
  2. FORADIL [Suspect]
     Dosage: 12 UG, BID
  3. MIFLONIDE [Suspect]
     Indication: ASTHMA
     Dosage: 200 UG, BID
     Dates: end: 20120820
  4. MIFLONIDE [Suspect]
     Dosage: 200 UG, BID

REACTIONS (4)
  - Calculus bladder [Recovering/Resolving]
  - Abdominal pain [Recovering/Resolving]
  - Paraesthesia oral [Recovered/Resolved]
  - Incorrect storage of drug [Unknown]
